FAERS Safety Report 14213562 (Version 1)
Quarter: 2017Q4

REPORT INFORMATION
  Report Type: Spontaneous
  Country: US (occurrence: None)
  Receive Date: 20171122
  Receipt Date: 20171122
  Transmission Date: 20180321
  Serious: No
  Sender: FDA-Public Use
  Company Number: None

PATIENT
  Age: 63 Year
  Sex: Female
  Weight: 100.7 kg

DRUGS (1)
  1. OTEZLA [Suspect]
     Active Substance: APREMILAST
     Indication: PSORIASIS
     Route: 048
     Dates: start: 20160428

REACTIONS (5)
  - Pruritus [None]
  - Rash [None]
  - Dry skin [None]
  - Therapy cessation [None]
  - Skin warm [None]

NARRATIVE: CASE EVENT DATE: 20171114
